FAERS Safety Report 4398018-0 (Version None)
Quarter: 2004Q2

REPORT INFORMATION
  Report Type: 
  Country: None (occurrence: None)
  Receive Date: 20040621
  Receipt Date: 20040316
  Transmission Date: 20050107
  Serious: Yes (Other)
  Sender: FDA-Public Use
  Company Number: USA-2003-0008989

PATIENT
  Age: 73 Year
  Sex: Female
  Weight: 30.8 kg

DRUGS (8)
  1. OXYCONTIN [Suspect]
     Dosage: 10 MG, Q12H, ORAL
     Route: 048
     Dates: start: 20021101, end: 20030616
  2. OXYFAST CONCENTRATE 20 MG/ML [Concomitant]
  3. SENOKOT-S 8.6 MG/50 MG [Concomitant]
  4. PLAVIX [Concomitant]
  5. HUMIBID LA [Concomitant]
  6. HALDOL [Concomitant]
  7. DIAZEPAM [Concomitant]
  8. PRILOSEC [Concomitant]

REACTIONS (1)
  - CLONIC CONVULSION [None]
